FAERS Safety Report 24789375 (Version 1)
Quarter: 2024Q4

REPORT INFORMATION
  Report Type: Spontaneous
  Country: US (occurrence: US)
  Receive Date: 20241230
  Receipt Date: 20241230
  Transmission Date: 20250115
  Serious: No
  Sender: MERCK
  Company Number: US-009507513-2412USA006922

PATIENT
  Age: 8 Year
  Sex: Male

DRUGS (6)
  1. TEMODAR [Suspect]
     Active Substance: TEMOZOLOMIDE
     Indication: Osteosarcoma
     Dosage: UNK
  2. TEMODAR [Suspect]
     Active Substance: TEMOZOLOMIDE
     Indication: Metastases to central nervous system
  3. ETOPOSIDE [Suspect]
     Active Substance: ETOPOSIDE
     Indication: Osteosarcoma
     Dosage: UNK
  4. ETOPOSIDE [Suspect]
     Active Substance: ETOPOSIDE
     Indication: Metastases to central nervous system
  5. PALBOCICLIB [Suspect]
     Active Substance: PALBOCICLIB
     Indication: Osteosarcoma
     Dosage: UNK
  6. PALBOCICLIB [Suspect]
     Active Substance: PALBOCICLIB
     Indication: Metastases to central nervous system

REACTIONS (1)
  - Off label use [Unknown]
